FAERS Safety Report 25832643 (Version 2)
Quarter: 2025Q4

REPORT INFORMATION
  Report Type: Spontaneous
  Country: US (occurrence: US)
  Receive Date: 20250922
  Receipt Date: 20251006
  Transmission Date: 20260118
  Serious: Yes (Other)
  Sender: TEVA
  Company Number: US-TEVA-VS-3373905

PATIENT
  Age: 57 Year
  Sex: Male

DRUGS (17)
  1. OXYCODONE [Suspect]
     Active Substance: OXYCODONE
     Indication: Cancer pain
     Dosage: AS NEEDED BASIS
     Route: 048
  2. NIFEDIPINE [Suspect]
     Active Substance: NIFEDIPINE
     Indication: Cancer pain
     Route: 061
  3. DULOXETINE [Concomitant]
     Active Substance: DULOXETINE
     Indication: Intervertebral disc degeneration
     Route: 048
  4. METHADONE [Suspect]
     Active Substance: METHADONE HYDROCHLORIDE
     Indication: Cancer pain
     Route: 048
  5. TOPIRAMATE [Concomitant]
     Active Substance: TOPIRAMATE
     Indication: Failed back surgery syndrome
     Route: 048
  6. AMITRIPTYLINE [Concomitant]
     Active Substance: AMITRIPTYLINE
     Indication: Insomnia
     Dosage: AT BEDTIME
     Route: 048
  7. CYCLOBENZAPRINE [Suspect]
     Active Substance: CYCLOBENZAPRINE
     Indication: Cancer pain
     Route: 061
  8. FENTANYL [Suspect]
     Active Substance: FENTANYL
     Indication: Cancer pain
     Route: 037
  9. HYDROMORPHONE [Suspect]
     Active Substance: HYDROMORPHONE
     Indication: Cancer pain
     Dosage: AS NEEDED BASIS
     Route: 048
  10. IMIPRAMINE [Suspect]
     Active Substance: IMIPRAMINE
     Indication: Cancer pain
     Route: 061
  11. KETAMINE [Concomitant]
     Active Substance: KETAMINE
     Indication: Cancer pain
     Route: 037
  12. KETAMINE [Concomitant]
     Active Substance: KETAMINE
     Indication: Cancer pain
     Route: 061
  13. PREGABALIN [Concomitant]
     Active Substance: PREGABALIN
     Indication: Failed back surgery syndrome
     Route: 048
  14. GABAPENTIN [Suspect]
     Active Substance: GABAPENTIN
     Indication: Cancer pain
     Route: 061
  15. BUPIVACAINE [Suspect]
     Active Substance: BUPIVACAINE
     Indication: Cancer pain
     Route: 061
  16. BUPIVACAINE [Suspect]
     Active Substance: BUPIVACAINE
     Indication: Cancer pain
     Route: 037
  17. BUPROPION [Concomitant]
     Active Substance: BUPROPION
     Indication: Affective disorder
     Route: 048

REACTIONS (5)
  - Constipation [Unknown]
  - Treatment failure [Unknown]
  - Sedation [Unknown]
  - Vomiting [Unknown]
  - Nausea [Unknown]
